FAERS Safety Report 25335201 (Version 1)
Quarter: 2025Q2

REPORT INFORMATION
  Report Type: Spontaneous
  Country: US (occurrence: US)
  Receive Date: 20250520
  Receipt Date: 20250520
  Transmission Date: 20250716
  Serious: Yes (Death, Other)
  Sender: Steriscience PTE
  Company Number: US-STERISCIENCE B.V.-2025-ST-000944

PATIENT
  Age: 52 Year
  Sex: Male

DRUGS (15)
  1. VANCOMYCIN [Suspect]
     Active Substance: VANCOMYCIN
     Indication: Haematological infection
     Route: 065
  2. VANCOMYCIN [Suspect]
     Active Substance: VANCOMYCIN
     Indication: Central nervous system infection
  3. VANCOMYCIN [Suspect]
     Active Substance: VANCOMYCIN
     Indication: Catheter site infection
  4. VANCOMYCIN [Suspect]
     Active Substance: VANCOMYCIN
     Indication: Central nervous system infection
  5. VANCOMYCIN [Suspect]
     Active Substance: VANCOMYCIN
     Indication: Staphylococcal infection
  6. CEFTAROLINE [Suspect]
     Active Substance: CEFTAROLINE
     Indication: Staphylococcal infection
     Route: 065
  7. CEFTAROLINE [Suspect]
     Active Substance: CEFTAROLINE
     Indication: Central nervous system infection
  8. CEFTAROLINE [Suspect]
     Active Substance: CEFTAROLINE
     Indication: Catheter site infection
  9. CEFTAROLINE [Suspect]
     Active Substance: CEFTAROLINE
     Indication: Central nervous system infection
  10. CEFTAROLINE [Suspect]
     Active Substance: CEFTAROLINE
     Indication: Haematological infection
  11. DAPTOMYCIN [Suspect]
     Active Substance: DAPTOMYCIN
     Indication: Staphylococcal infection
     Route: 065
  12. DAPTOMYCIN [Suspect]
     Active Substance: DAPTOMYCIN
     Indication: Haematological infection
  13. DAPTOMYCIN [Suspect]
     Active Substance: DAPTOMYCIN
     Indication: Central nervous system infection
  14. DAPTOMYCIN [Suspect]
     Active Substance: DAPTOMYCIN
     Indication: Catheter site infection
  15. DAPTOMYCIN [Suspect]
     Active Substance: DAPTOMYCIN
     Indication: Central nervous system infection

REACTIONS (1)
  - Drug ineffective [Fatal]
